FAERS Safety Report 11553501 (Version 2)
Quarter: 2015Q4

REPORT INFORMATION
  Report Type: Spontaneous
  Country: GB (occurrence: GB)
  Receive Date: 20150925
  Receipt Date: 20151012
  Transmission Date: 20160304
  Serious: No
  Sender: FDA-Public Use
  Company Number: GB-PFIZER INC-2015317310

PATIENT
  Age: 34 Year
  Sex: Female

DRUGS (1)
  1. ETHINYLESTRADIOL/LEVONORGESTREL [Suspect]
     Active Substance: ETHINYL ESTRADIOL\LEVONORGESTREL
     Indication: POST COITAL CONTRACEPTION
     Dosage: 2 DF, 2X/DAY, 0.1MG/0.5MG DAILY

REACTIONS (4)
  - Peritoneal haemorrhage [None]
  - Product use issue [Unknown]
  - Haematosalpinx [None]
  - Ectopic pregnancy [None]
